FAERS Safety Report 20591246 (Version 7)
Quarter: 2023Q1

REPORT INFORMATION
  Report Type: Spontaneous
  Country: BR (occurrence: BR)
  Receive Date: 20220314
  Receipt Date: 20230110
  Transmission Date: 20230418
  Serious: No
  Sender: FDA-Public Use
  Company Number: BR-GLAXOSMITHKLINE-BR2019GSK103533

PATIENT

DRUGS (18)
  1. NUCALA [Suspect]
     Active Substance: MEPOLIZUMAB
     Indication: Asthma
     Dosage: 100 MG/ML, Z (EVERY 4 WEEKS)
     Route: 058
     Dates: start: 20181119
  2. NUCALA [Suspect]
     Active Substance: MEPOLIZUMAB
     Dosage: 100 MG, Z
     Route: 058
     Dates: start: 20181119
  3. NUCALA [Suspect]
     Active Substance: MEPOLIZUMAB
     Dosage: 100 MG/ML, Z (EVERY 4 WEEKS)
     Route: 058
     Dates: start: 20200608
  4. NUCALA [Suspect]
     Active Substance: MEPOLIZUMAB
     Dosage: 100 MG/ML
  5. ALBUTEROL [Suspect]
     Active Substance: ALBUTEROL
     Indication: Product used for unknown indication
     Dosage: UNK
  6. AMOXICILLIN\CLAVULANIC ACID [Suspect]
     Active Substance: AMOXICILLIN\CLAVULANIC ACID
     Indication: Lung disorder
     Dosage: UNK
  7. PREDNISOLONE [Suspect]
     Active Substance: PREDNISOLONE
     Indication: Product used for unknown indication
     Dosage: UNK
  8. LEVOFLOXACIN [Suspect]
     Active Substance: LEVOFLOXACIN
     Indication: Lung disorder
     Dosage: UNK
  9. MOMETASONE FUROATE [Suspect]
     Active Substance: MOMETASONE FUROATE
     Indication: Lung disorder
     Dosage: UNK
  10. ASTRAZENECA COVID-19 VACCINE [Suspect]
     Active Substance: AZD-1222
     Indication: Prophylaxis
     Dosage: UNK
     Dates: start: 202105
  11. SYMBICORT [Suspect]
     Active Substance: BUDESONIDE\FORMOTEROL FUMARATE DIHYDRATE
     Indication: Product used for unknown indication
     Dosage: UNK, BID
  12. BECLOMETHASONE DIPROPIONATE [Suspect]
     Active Substance: BECLOMETHASONE DIPROPIONATE
     Indication: Product used for unknown indication
     Dosage: UNK, BID
  13. ACETYLCYSTEINE [Suspect]
     Active Substance: ACETYLCYSTEINE
     Indication: Product used for unknown indication
     Dosage: UNK, BID
  14. BEROTEC [Suspect]
     Active Substance: FENOTEROL HYDROBROMIDE
     Indication: Product used for unknown indication
     Dosage: UNK
  15. SPIRIVA [Suspect]
     Active Substance: TIOTROPIUM BROMIDE MONOHYDRATE
     Indication: Product used for unknown indication
     Dosage: UNK, QD
  16. INFLUENZA VIRUS VACCINE [Concomitant]
     Active Substance: INFLUENZA VIRUS VACCINE
     Indication: Prophylaxis
     Dosage: UNK
  17. FLEBON [Concomitant]
     Indication: Cardiovascular disorder
     Dosage: 50 MG 2 TABLETS WHEN SHE FEELS THE PAIN OF VARICOSE VEINS
  18. FLEBON [Concomitant]
     Indication: Varicose vein

REACTIONS (29)
  - Pigmentation disorder [Recovered/Resolved]
  - Pain in extremity [Recovered/Resolved]
  - Pain [Unknown]
  - Alopecia [Not Recovered/Not Resolved]
  - Condition aggravated [Unknown]
  - Stress [Unknown]
  - Asthma [Unknown]
  - Increased bronchial secretion [Not Recovered/Not Resolved]
  - Malaise [Not Recovered/Not Resolved]
  - Oxygen saturation decreased [Recovered/Resolved]
  - Cough [Recovered/Resolved]
  - Abdominal distension [Not Recovered/Not Resolved]
  - Nausea [Not Recovered/Not Resolved]
  - Lung disorder [Not Recovered/Not Resolved]
  - Contusion [Not Recovered/Not Resolved]
  - Abdominal pain [Not Recovered/Not Resolved]
  - Headache [Recovered/Resolved]
  - Respiratory tract infection [Unknown]
  - Labyrinthitis [Unknown]
  - Secretion discharge [Recovered/Resolved]
  - Dyspnoea [Recovered/Resolved]
  - H3N2 influenza [Unknown]
  - Social problem [Unknown]
  - Drug ineffective [Unknown]
  - Therapy interrupted [Unknown]
  - Inappropriate schedule of product administration [Not Recovered/Not Resolved]
  - Product dose omission issue [Unknown]
  - Product supply issue [Unknown]
  - Product preparation error [Unknown]

NARRATIVE: CASE EVENT DATE: 20180101
